FAERS Safety Report 6360178-X (Version None)
Quarter: 2009Q3

REPORT INFORMATION
  Report Type: 
  Country: None (occurrence: None)
  Receive Date: 20090917
  Receipt Date: 20090908
  Transmission Date: 20100115
  Serious: Yes (Life-Threatening, Other)
  Sender: FDA-Public Use
  Company Number: US-BAXTER-2009BH014011

PATIENT
  Age: 18 Year
  Sex: Female

DRUGS (2)
  1. HEPARIN [Suspect]
     Indication: ANTICOAGULANT THERAPY
     Route: 065
  2. ENOXAPARIN [Suspect]
     Indication: ANTICOAGULANT THERAPY
     Route: 065

REACTIONS (4)
  - CONDITION AGGRAVATED [None]
  - HEPARIN-INDUCED THROMBOCYTOPENIA [None]
  - SPLENIC INFARCTION [None]
  - SPLENIC RUPTURE [None]
